FAERS Safety Report 19205996 (Version 1)
Quarter: 2021Q2

REPORT INFORMATION
  Report Type: Spontaneous
  Country: US (occurrence: US)
  Receive Date: 20210503
  Receipt Date: 20210503
  Transmission Date: 20210717
  Serious: Yes (Hospitalization)
  Sender: FDA-Public Use
  Company Number: None

PATIENT
  Sex: Female

DRUGS (18)
  1. LOMOTIL [Concomitant]
     Active Substance: ATROPINE SULFATE\DIPHENOXYLATE HYDROCHLORIDE
  2. OXYCODONE [Concomitant]
     Active Substance: OXYCODONE
  3. LUNESTA [Concomitant]
     Active Substance: ESZOPICLONE
  4. MOBIC [Concomitant]
     Active Substance: MELOXICAM
  5. CYCLOBENZAPRINE. [Concomitant]
     Active Substance: CYCLOBENZAPRINE
  6. PROMETHAZINE [Concomitant]
     Active Substance: PROMETHAZINE HYDROCHLORIDE
  7. HYDROXYZINE [Concomitant]
     Active Substance: HYDROXYZINE HYDROCHLORIDE
  8. NEXIUM [Concomitant]
     Active Substance: ESOMEPRAZOLE MAGNESIUM
  9. LEVETIRACETAM. [Concomitant]
     Active Substance: LEVETIRACETAM
  10. VIMPAT [Concomitant]
     Active Substance: LACOSAMIDE
  11. ONDANSETRON [Concomitant]
     Active Substance: ONDANSETRON
  12. LAMICTAL [Concomitant]
     Active Substance: LAMOTRIGINE
  13. ZONIDAMIDE [Concomitant]
  14. SEROQUEL [Concomitant]
     Active Substance: QUETIAPINE FUMARATE
  15. TRAZODONE [Concomitant]
     Active Substance: TRAZODONE HYDROCHLORIDE
  16. RELPAX [Concomitant]
     Active Substance: ELETRIPTAN HYDROBROMIDE
  17. NEURONTIN [Concomitant]
     Active Substance: GABAPENTIN
  18. SPRYCEL [Suspect]
     Active Substance: DASATINIB
     Indication: CHRONIC MYELOID LEUKAEMIA
     Route: 048
     Dates: start: 20210120

REACTIONS (2)
  - Hospitalisation [None]
  - Intentional dose omission [None]
